FAERS Safety Report 18490499 (Version 1)
Quarter: 2020Q4

REPORT INFORMATION
  Report Type: Spontaneous
  Country: AR (occurrence: AR)
  Receive Date: 20201111
  Receipt Date: 20201111
  Transmission Date: 20210114
  Serious: Yes (Other)
  Sender: FDA-Public Use
  Company Number: AR-PFIZER INC-2017284859

PATIENT
  Age: 38 Year
  Sex: Female

DRUGS (6)
  1. METHYLPREDNISOLONE SODIUM SUCCINATE. [Suspect]
     Active Substance: METHYLPREDNISOLONE SODIUM SUCCINATE
     Indication: HAEMORRHAGE
     Dosage: 1 G, DAILY
  2. RITUXIMAB. [Concomitant]
     Active Substance: RITUXIMAB
     Indication: NEUROLOGICAL SYMPTOM
  3. RITUXIMAB. [Concomitant]
     Active Substance: RITUXIMAB
     Indication: THROMBOCYTOPENIA
  4. GAMMAGLOBULIN [Suspect]
     Active Substance: HUMAN IMMUNOGLOBULIN G
     Indication: HAEMORRHAGE
     Dosage: UNK
     Route: 042
  5. RITUXIMAB. [Concomitant]
     Active Substance: RITUXIMAB
     Indication: HAEMORRHAGE
     Dosage: 375 MG/M2, WEEKLY (FOR 4 WEEKS )
  6. CYCLOPHOSPHAMIDE. [Suspect]
     Active Substance: CYCLOPHOSPHAMIDE
     Indication: HAEMORRHAGE
     Dosage: UNK

REACTIONS (4)
  - Haemorrhage intracranial [Unknown]
  - Cerebrovascular accident [Unknown]
  - Off label use [Unknown]
  - Drug ineffective for unapproved indication [Unknown]
